FAERS Safety Report 23472618 (Version 3)
Quarter: 2024Q2

REPORT INFORMATION
  Report Type: Spontaneous
  Country: US (occurrence: US)
  Receive Date: 20240202
  Receipt Date: 20240523
  Transmission Date: 20240716
  Serious: Yes (Life-Threatening, Hospitalization, Other)
  Sender: FDA-Public Use
  Company Number: US-ELI_LILLY_AND_COMPANY-US202401015693

PATIENT
  Age: 57 Year
  Sex: Male

DRUGS (3)
  1. TRULICITY [Suspect]
     Active Substance: DULAGLUTIDE
     Indication: Diabetes mellitus
     Dosage: 0.75 MG, UNKNOWN
     Route: 058
  2. TRULICITY [Suspect]
     Active Substance: DULAGLUTIDE
     Dosage: 1.5 MG (TWO PENS OF 0.75 MG), UNKNOWN
     Route: 058
     Dates: start: 2023
  3. PROZAC [Suspect]
     Active Substance: FLUOXETINE HYDROCHLORIDE
     Indication: Anxiety
     Dosage: 10 MG, DAILY
     Route: 065

REACTIONS (10)
  - Cardiac arrest [Unknown]
  - Chest pain [Not Recovered/Not Resolved]
  - Dysarthria [Not Recovered/Not Resolved]
  - Dyspnoea [Not Recovered/Not Resolved]
  - Gait inability [Not Recovered/Not Resolved]
  - Suicidal ideation [Not Recovered/Not Resolved]
  - Blood potassium decreased [Unknown]
  - Post-traumatic stress disorder [Unknown]
  - Panic attack [Unknown]
  - Mental disorder [Unknown]

NARRATIVE: CASE EVENT DATE: 20231101
